FAERS Safety Report 11301303 (Version 3)
Quarter: 2015Q4

REPORT INFORMATION
  Report Type: Spontaneous
  Country: US (occurrence: US)
  Receive Date: 20150722
  Receipt Date: 20151104
  Transmission Date: 20160304
  Serious: No
  Sender: FDA-Public Use
  Company Number: US-ELI_LILLY_AND_COMPANY-US200909002371

PATIENT
  Sex: Female

DRUGS (4)
  1. FORTEO [Suspect]
     Active Substance: TERIPARATIDE
     Dosage: 20 UG, DAILY (1/D)
  2. EVISTA [Suspect]
     Active Substance: RALOXIFENE HYDROCHLORIDE
     Indication: OSTEOPOROSIS
     Dates: start: 1999, end: 2009
  3. FORTEO [Suspect]
     Active Substance: TERIPARATIDE
     Dosage: 20 UG, QD
  4. FORTEO [Suspect]
     Active Substance: TERIPARATIDE
     Indication: OSTEOPOROSIS
     Dosage: 20 UG, DAILY (1/D)
     Dates: start: 200908

REACTIONS (10)
  - Musculoskeletal discomfort [Unknown]
  - Asthenia [Unknown]
  - Body temperature increased [Unknown]
  - Drug ineffective [Recovered/Resolved]
  - Back pain [Unknown]
  - Malaise [Unknown]
  - Hypotension [Unknown]
  - Gastrointestinal inflammation [Unknown]
  - Odynophagia [Unknown]
  - Drug dose omission [Unknown]
